FAERS Safety Report 5860985-3 (Version None)
Quarter: 2008Q3

REPORT INFORMATION
  Report Type: 
  Country: None (occurrence: None)
  Receive Date: 20080827
  Receipt Date: 20080121
  Transmission Date: 20090109
  Serious: No
  Sender: FDA-Public Use
  Company Number: US-ABBOTT-08P-163-0434224-00

PATIENT
  Age: 80 Year
  Sex: Female

DRUGS (2)
  1. COATED PDS [Suspect]
     Indication: DRUG USE FOR UNKNOWN INDICATION
     Route: 048
  2. LOTREL [Concomitant]
     Indication: HYPERTENSION

REACTIONS (5)
  - DIARRHOEA [None]
  - FLUSHING [None]
  - HEADACHE [None]
  - MUSCULAR WEAKNESS [None]
  - TREMOR [None]
